FAERS Safety Report 13188240 (Version 1)
Quarter: 2017Q1

REPORT INFORMATION
  Report Type: Report from Study
  Country: US (occurrence: US)
  Receive Date: 20170206
  Receipt Date: 20170206
  Transmission Date: 20170428
  Serious: Yes (Other)
  Sender: FDA-Public Use
  Company Number: US-ROCHE-1887794

PATIENT
  Sex: Male

DRUGS (2)
  1. LUCENTIS [Suspect]
     Active Substance: RANIBIZUMAB
     Indication: NEOVASCULAR AGE-RELATED MACULAR DEGENERATION
     Dosage: 0.05 ML OF 10 MG/ML SOLUTION?ONGOING: UNKNOWN
     Route: 050
  2. LUCENTIS [Suspect]
     Active Substance: RANIBIZUMAB
     Indication: CHOROIDAL NEOVASCULARISATION

REACTIONS (2)
  - Neoplasm malignant [Unknown]
  - Terminal state [Unknown]
